FAERS Safety Report 4702204-7 (Version None)
Quarter: 2005Q2

REPORT INFORMATION
  Report Type: 
  Country: None (occurrence: None)
  Receive Date: 20050628
  Receipt Date: 20050628
  Transmission Date: 20051028
  Serious: Yes (Disabling)
  Sender: FDA-Public Use
  Company Number: None

PATIENT
  Age: 60 Year
  Sex: Male
  Weight: 106.5953 kg

DRUGS (6)
  1. CRESTOR [Suspect]
     Indication: MYALGIA
     Dates: start: 20050110, end: 20050531
  2. DOXEPIN HCL [Concomitant]
  3. NIASPAN [Concomitant]
  4. ZESTRIL [Concomitant]
  5. FLOMAX [Concomitant]
  6. COENZYME [Concomitant]

REACTIONS (2)
  - MUSCLE SPASMS [None]
  - MYALGIA [None]
